FAERS Safety Report 5800915-3 (Version None)
Quarter: 2008Q3

REPORT INFORMATION
  Report Type: 
  Country: None (occurrence: None)
  Receive Date: 20080701
  Receipt Date: 20080618
  Transmission Date: 20090109
  Serious: Yes (Other)
  Sender: FDA-Public Use
  Company Number: 2008AL007458

PATIENT
  Age: 16 Year
  Sex: Female

DRUGS (6)
  1. NAPROXEN SODIUM [Suspect]
     Dates: start: 20070201
  2. METHOTREXATE [Concomitant]
  3. ACETAMINOPHEN [Concomitant]
  4. TRIAMCINOLONE [Concomitant]
  5. DICLOFENAC [Concomitant]
  6. FOLIC ACID [Concomitant]

REACTIONS (2)
  - CONDITION AGGRAVATED [None]
  - JUVENILE ARTHRITIS [None]
